FAERS Safety Report 6714043-6 (Version None)
Quarter: 2010Q2

REPORT INFORMATION
  Report Type: 
  Country: None (occurrence: None)
  Receive Date: 20100506
  Receipt Date: 20100429
  Transmission Date: 20101027
  Serious: Yes (Hospitalization)
  Sender: FDA-Public Use
  Company Number: PHHO2010FR02001

PATIENT
  Sex: Male
  Weight: 65 kg

DRUGS (1)
  1. TASIGNA [Suspect]
     Indication: GASTROINTESTINAL STROMAL TUMOUR
     Dosage: 400 MG, BID
     Route: 048
     Dates: start: 20100121, end: 20100310

REACTIONS (4)
  - ANAEMIA [None]
  - TACHYCARDIA [None]
  - TUMOUR HAEMORRHAGE [None]
  - VENOUS HAEMORRHAGE [None]
